FAERS Safety Report 9491211 (Version 1)
Quarter: 2013Q1

REPORT INFORMATION
  Report Type: Not Available
  Country: US (occurrence: US)
  Receive Date: 20120619
  Receipt Date: 20120619
  Transmission Date: 20140127
  Serious: Yes (Hospitalization)
  Sender: FDA-Public Use
  Company Number: US-LUNDBECK-DKLU1077480

PATIENT
  Age: 13 None
  Sex: Male

DRUGS (3)
  1. SABRIL (FOR ORAL SOLUTION) [Suspect]
     Indication: EPILEPSY
     Dosage: 2 PACKAGES
     Route: 048
     Dates: start: 20100528
  2. SABRIL (FOR ORAL SOLUTION) [Suspect]
     Indication: SIMPLE PARTIAL SEIZURES
  3. LEVETIRACETAM [Concomitant]
     Indication: PRODUCT USED FOR UNKNOWN INDICATION

REACTIONS (4)
  - Vomiting [Unknown]
  - Pyrexia [Unknown]
  - Abdominal pain [Unknown]
  - Constipation [Unknown]
